FAERS Safety Report 13771676 (Version 5)
Quarter: 2017Q4

REPORT INFORMATION
  Report Type: Spontaneous
  Country: US (occurrence: US)
  Receive Date: 20170720
  Receipt Date: 20171122
  Transmission Date: 20180320
  Serious: No
  Sender: FDA-Public Use
  Company Number: US-PFIZER INC-2017053804

PATIENT
  Age: 13 Year
  Sex: Female
  Weight: 38.1 kg

DRUGS (5)
  1. GENOTROPIN [Suspect]
     Active Substance: SOMATROPIN
     Dosage: 2 MG, DAILY (2 SHOTS; EVERY NIGHT AT BED TIME)
     Route: 058
     Dates: start: 201704, end: 20171109
  2. ESTRADIOL. [Concomitant]
     Active Substance: ESTRADIOL
     Dosage: 0.5 MG, DAILY
     Dates: start: 201704
  3. GENOTROPIN [Suspect]
     Active Substance: SOMATROPIN
     Indication: TURNER^S SYNDROME
     Dosage: 1.7 MG, DAILY (EVERY NIGHT AT BED TIME)
     Route: 058
  4. GENOTROPIN [Suspect]
     Active Substance: SOMATROPIN
     Dosage: 1.8 MG, DAILY (EVERY NIGHT AT BED TIME)
     Route: 058
     Dates: start: 201211, end: 201704
  5. GENOTROPIN [Suspect]
     Active Substance: SOMATROPIN
     Indication: GONADAL DYSGENESIS
     Dosage: 1.8 MG, DAILY (EVERY NIGHT AT BED TIME)
     Route: 058
     Dates: start: 201210, end: 2012

REACTIONS (4)
  - Drug dose omission [Unknown]
  - Incorrect dose administered [Unknown]
  - Abnormal sensation in eye [Recovered/Resolved]
  - Wrong device used [Unknown]

NARRATIVE: CASE EVENT DATE: 20170716
